FAERS Safety Report 17418923 (Version 3)
Quarter: 2020Q1

REPORT INFORMATION
  Report Type: Report from Study
  Country: GB (occurrence: GB)
  Receive Date: 20200214
  Receipt Date: 20200319
  Transmission Date: 20200409
  Serious: Yes (Hospitalization)
  Sender: FDA-Public Use
  Company Number: GB-ROCHE-2545127

PATIENT
  Age: 43 Year
  Sex: Female
  Weight: 73.7 kg

DRUGS (81)
  1. CHLORPHENAMINE [Concomitant]
     Active Substance: CHLORPHENIRAMINE MALEATE
     Dosage: OLE: WEEK 96
     Route: 065
     Dates: start: 20160706
  2. PARACETAMOL [Concomitant]
     Active Substance: ACETAMINOPHEN
     Indication: PREMEDICATION
     Dosage: BASELINE (WEEK 1)
     Route: 065
     Dates: start: 20121003
  3. PARACETAMOL [Concomitant]
     Active Substance: ACETAMINOPHEN
     Route: 065
     Dates: start: 20200202, end: 20200202
  4. METHYLPREDNISOLONE. [Concomitant]
     Active Substance: METHYLPREDNISOLONE
     Dosage: OLE-WEEK 24
     Route: 065
     Dates: start: 20150218, end: 20150218
  5. METHYLPREDNISOLONE. [Concomitant]
     Active Substance: METHYLPREDNISOLONE
     Dosage: OLE-WEEK 120
     Route: 065
     Dates: start: 20161221, end: 20161221
  6. REGURIN [Concomitant]
     Active Substance: TROSPIUM CHLORIDE
     Indication: MICTURITION URGENCY
     Route: 065
     Dates: start: 20180419
  7. MIRABEGRON [Concomitant]
     Active Substance: MIRABEGRON
     Indication: HYPERTONIC BLADDER
     Route: 065
     Dates: start: 20181026
  8. CHLORPHENAMINE [Concomitant]
     Active Substance: CHLORPHENIRAMINE MALEATE
     Dosage: OLE: WEEK 192
     Route: 065
     Dates: start: 20180509
  9. CHLORPHENAMINE [Concomitant]
     Active Substance: CHLORPHENIRAMINE MALEATE
     Dosage: OLE: WEEK 240
     Route: 065
     Dates: start: 20190410
  10. PARACETAMOL [Concomitant]
     Active Substance: ACETAMINOPHEN
     Dosage: WEEK 72
     Route: 065
     Dates: start: 20140219
  11. PARACETAMOL [Concomitant]
     Active Substance: ACETAMINOPHEN
     Dosage: OLE-WEEK 2
     Route: 065
     Dates: start: 20140917
  12. PARACETAMOL [Concomitant]
     Active Substance: ACETAMINOPHEN
     Dosage: OLE-WEEK 24
     Route: 065
     Dates: start: 20150218
  13. PARACETAMOL [Concomitant]
     Active Substance: ACETAMINOPHEN
     Dosage: OLE-WEEK 120
     Route: 065
     Dates: start: 20161221
  14. PARACETAMOL [Concomitant]
     Active Substance: ACETAMINOPHEN
     Dosage: OLE-WEEK 240
     Route: 065
     Dates: start: 20190410
  15. PARACETAMOL [Concomitant]
     Active Substance: ACETAMINOPHEN
     Route: 065
     Dates: start: 20140914, end: 20140916
  16. METHYLPREDNISOLONE. [Concomitant]
     Active Substance: METHYLPREDNISOLONE
     Dosage: OLE-WEEK 192
     Route: 065
     Dates: start: 20180509, end: 20180509
  17. METHYLPREDNISOLONE. [Concomitant]
     Active Substance: METHYLPREDNISOLONE
     Dosage: OLE-WEEK 216
     Route: 065
     Dates: start: 20181024, end: 20181024
  18. SOLIFENACIN [Concomitant]
     Active Substance: SOLIFENACIN
     Indication: MICTURITION URGENCY
     Route: 065
     Dates: start: 20160330
  19. CHLORPHENAMINE [Concomitant]
     Active Substance: CHLORPHENIRAMINE MALEATE
     Indication: PREMEDICATION
     Dosage: BASELINE (WEEK 1)
     Route: 065
     Dates: start: 20121003
  20. PARACETAMOL [Concomitant]
     Active Substance: ACETAMINOPHEN
     Dosage: OLE-WEEK 0
     Route: 065
     Dates: start: 20140903
  21. PARACETAMOL [Concomitant]
     Active Substance: ACETAMINOPHEN
     Dosage: OLE-WEEK 72
     Route: 065
     Dates: start: 20160120
  22. METHYLPREDNISOLONE. [Concomitant]
     Active Substance: METHYLPREDNISOLONE
     Indication: PREMEDICATION
     Dosage: BASELINE (WEEK 1)
     Route: 065
     Dates: start: 20121003, end: 20121003
  23. METHYLPREDNISOLONE. [Concomitant]
     Active Substance: METHYLPREDNISOLONE
     Dosage: WEEK 48
     Route: 065
     Dates: start: 20130904, end: 20130904
  24. METHYLPREDNISOLONE. [Concomitant]
     Active Substance: METHYLPREDNISOLONE
     Dosage: OLE-WEEK 96
     Route: 065
     Dates: start: 20160706, end: 20160706
  25. CITALOPRAM [Concomitant]
     Active Substance: CITALOPRAM HYDROBROMIDE
     Route: 065
     Dates: start: 20170817
  26. COCODAMOL [Concomitant]
     Active Substance: ACETAMINOPHEN\CODEINE PHOSPHATE
     Indication: BACK PAIN
  27. CHLORPHENAMINE [Concomitant]
     Active Substance: CHLORPHENIRAMINE MALEATE
     Dosage: WEEK 24
     Route: 065
     Dates: start: 20130220
  28. CHLORPHENAMINE [Concomitant]
     Active Substance: CHLORPHENIRAMINE MALEATE
     Dosage: WEEK 72
     Route: 065
     Dates: start: 20140219
  29. CHLORPHENAMINE [Concomitant]
     Active Substance: CHLORPHENIRAMINE MALEATE
     Dosage: OLE: WEEK 48
     Route: 065
     Dates: start: 20150805
  30. CHLORPHENAMINE [Concomitant]
     Active Substance: CHLORPHENIRAMINE MALEATE
     Dosage: OLE: WEEK 120
     Route: 065
     Dates: start: 20161221
  31. PARACETAMOL [Concomitant]
     Active Substance: ACETAMINOPHEN
     Dosage: OLE-WEEK 48
     Route: 065
     Dates: start: 20150805
  32. METHYLPREDNISOLONE. [Concomitant]
     Active Substance: METHYLPREDNISOLONE
     Dosage: WEEK 72
     Route: 065
     Dates: start: 20140219, end: 20140219
  33. METHYLPREDNISOLONE. [Concomitant]
     Active Substance: METHYLPREDNISOLONE
     Dosage: OLE-WEEK 264
     Route: 065
     Dates: start: 20190925, end: 20190925
  34. HARTMANNS [Concomitant]
     Active Substance: CALCIUM CHLORIDE\POTASSIUM CHLORIDE\SODIUM LACTATE
     Dosage: 1000 MILLILITER^S)
     Route: 065
     Dates: start: 20200202, end: 20200202
  35. MICROGYNON [ETHINYLESTRADIOL;LEVONORGESTREL] [Concomitant]
     Active Substance: ETHINYL ESTRADIOL\LEVONORGESTREL
     Indication: CONTRACEPTION
     Route: 065
     Dates: start: 20131011
  36. AMANTADINE. [Concomitant]
     Active Substance: AMANTADINE HYDROCHLORIDE
     Indication: FATIGUE
     Route: 065
     Dates: start: 20130503
  37. AMANTADINE. [Concomitant]
     Active Substance: AMANTADINE HYDROCHLORIDE
     Indication: FATIGUE
     Route: 065
     Dates: start: 201208, end: 20130220
  38. CLONAZEPAM. [Concomitant]
     Active Substance: CLONAZEPAM
     Indication: TREMOR
     Dosage: 0.50 MILLIGRAM
     Route: 065
     Dates: start: 20130902, end: 20130922
  39. CLONAZEPAM. [Concomitant]
     Active Substance: CLONAZEPAM
     Route: 065
     Dates: start: 20130923, end: 20141126
  40. INTERFERON BETA-1A [Suspect]
     Active Substance: INTERFERON BETA-1A
     Indication: RELAPSING-REMITTING MULTIPLE SCLEROSIS
     Route: 058
     Dates: start: 20140806, end: 20140901
  41. CHLORPHENAMINE [Concomitant]
     Active Substance: CHLORPHENIRAMINE MALEATE
     Dosage: WEEK 48
     Route: 065
     Dates: start: 20130904
  42. CHLORPHENAMINE [Concomitant]
     Active Substance: CHLORPHENIRAMINE MALEATE
     Dosage: OLE: WEEK 0
     Route: 065
     Dates: start: 20140903
  43. CHLORPHENAMINE [Concomitant]
     Active Substance: CHLORPHENIRAMINE MALEATE
     Dosage: OLE: WEEK 216
     Route: 065
     Dates: start: 20181024
  44. PARACETAMOL [Concomitant]
     Active Substance: ACETAMINOPHEN
     Dosage: OLE-WEEK 168
     Route: 065
     Dates: start: 20171123
  45. METHYLPREDNISOLONE. [Concomitant]
     Active Substance: METHYLPREDNISOLONE
     Dosage: OLE-WEEK 2
     Route: 065
     Dates: start: 20140917, end: 20140917
  46. METHYLPREDNISOLONE. [Concomitant]
     Active Substance: METHYLPREDNISOLONE
     Dosage: OLE-WEEK 72
     Route: 065
     Dates: start: 20160120, end: 20160120
  47. METHYLPREDNISOLONE. [Concomitant]
     Active Substance: METHYLPREDNISOLONE
     Dosage: OLE-WEEK 144
     Route: 065
     Dates: start: 20170607, end: 20170607
  48. INFLUENZA VACCINE [Concomitant]
     Active Substance: INFLUENZA VIRUS VACCINE
     Dosage: 0.50 MILLILITER^S)
     Route: 065
     Dates: start: 20140115, end: 20140115
  49. GABAPENTIN. [Concomitant]
     Active Substance: GABAPENTIN
     Route: 065
     Dates: start: 20140923
  50. PLACEBO [Suspect]
     Active Substance: UNSPECIFIED INGREDIENT
     Indication: RELAPSING-REMITTING MULTIPLE SCLEROSIS
     Dosage: INFUSIONS ON DAYS 1 AND 15 FOR THE FIRST DOSE AND AS A SINGLE INFUSION OF 600 MG FOR ALL SUBSEQUENT
     Route: 042
     Dates: start: 20121003, end: 20121003
  51. CHLORPHENAMINE [Concomitant]
     Active Substance: CHLORPHENIRAMINE MALEATE
     Dosage: WEEK 2
     Route: 065
     Dates: start: 20121017
  52. CHLORPHENAMINE [Concomitant]
     Active Substance: CHLORPHENIRAMINE MALEATE
     Dosage: OLE: WEEK 2
     Route: 065
     Dates: start: 20140917
  53. PARACETAMOL [Concomitant]
     Active Substance: ACETAMINOPHEN
     Indication: HEADACHE
     Dosage: WEEK 24
     Route: 065
     Dates: start: 20130220
  54. PARACETAMOL [Concomitant]
     Active Substance: ACETAMINOPHEN
     Dosage: OLE-WEEK 96
     Route: 065
     Dates: start: 20160706
  55. PARACETAMOL [Concomitant]
     Active Substance: ACETAMINOPHEN
     Dosage: OLE-WEEK 192
     Route: 065
     Dates: start: 20180509
  56. PARACETAMOL [Concomitant]
     Active Substance: ACETAMINOPHEN
     Dosage: OLE-WEEK 216
     Route: 065
     Dates: start: 20181024
  57. METHYLPREDNISOLONE. [Concomitant]
     Active Substance: METHYLPREDNISOLONE
     Dosage: WEEK 2
     Route: 065
     Dates: start: 20121017, end: 20121017
  58. METHYLPREDNISOLONE. [Concomitant]
     Active Substance: METHYLPREDNISOLONE
     Dosage: OLE-WEEK 0
     Route: 065
     Dates: start: 20140903, end: 20140903
  59. METHYLPREDNISOLONE. [Concomitant]
     Active Substance: METHYLPREDNISOLONE
     Dosage: OLE-WEEK 240
     Route: 065
     Dates: start: 20190410, end: 20190410
  60. TAZOCIN [Concomitant]
     Active Substance: PIPERACILLIN SODIUM\TAZOBACTAM SODIUM
     Indication: ANAL ABSCESS
     Route: 065
     Dates: start: 20200202
  61. OCRELIZUMAB. [Suspect]
     Active Substance: OCRELIZUMAB
     Indication: RELAPSING-REMITTING MULTIPLE SCLEROSIS
     Dosage: INFUSIONS ON DAYS 1 AND 15 FOR THE FIRST DOSE AND AS A SINGLE INFUSION OF 600 MG FOR ALL SUBSEQUENT
     Route: 042
     Dates: start: 20140903, end: 20140903
  62. CHLORPHENAMINE [Concomitant]
     Active Substance: CHLORPHENIRAMINE MALEATE
     Dosage: OLE: WEEK 144
     Route: 065
     Dates: start: 20170607
  63. PARACETAMOL [Concomitant]
     Active Substance: ACETAMINOPHEN
     Indication: ANALGESIC THERAPY
     Dosage: WEEK 2
     Route: 065
     Dates: start: 20121017
  64. PARACETAMOL [Concomitant]
     Active Substance: ACETAMINOPHEN
     Dosage: WEEK 48
     Route: 065
     Dates: start: 20130904
  65. PARACETAMOL [Concomitant]
     Active Substance: ACETAMINOPHEN
     Route: 065
     Dates: start: 20150128, end: 20150130
  66. METHYLPREDNISOLONE. [Concomitant]
     Active Substance: METHYLPREDNISOLONE
     Dosage: WEEK 24
     Route: 065
     Dates: start: 20130320
  67. METHYLPREDNISOLONE. [Concomitant]
     Active Substance: METHYLPREDNISOLONE
     Dosage: OLE-WEEK 168
     Route: 065
     Dates: start: 20171123, end: 20171123
  68. COUGH AND COLD PREPARATIONS [Concomitant]
     Active Substance: UNSPECIFIED INGREDIENT
     Dosage: 1 SACHET
     Route: 065
     Dates: start: 20170925, end: 20170930
  69. CITALOPRAM [Concomitant]
     Active Substance: CITALOPRAM HYDROBROMIDE
     Indication: ANXIETY
     Route: 065
     Dates: start: 20130503, end: 20170816
  70. CLONAZEPAM. [Concomitant]
     Active Substance: CLONAZEPAM
     Route: 065
     Dates: start: 20141127
  71. CHLORPHENAMINE [Concomitant]
     Active Substance: CHLORPHENIRAMINE MALEATE
     Dosage: OLE: WEEK 24
     Route: 065
     Dates: start: 20150218
  72. CHLORPHENAMINE [Concomitant]
     Active Substance: CHLORPHENIRAMINE MALEATE
     Dosage: OLE: WEEK 72
     Route: 065
     Dates: start: 20160120
  73. CHLORPHENAMINE [Concomitant]
     Active Substance: CHLORPHENIRAMINE MALEATE
     Dosage: OLE: WEEK 168
     Route: 065
     Dates: start: 20171123
  74. CHLORPHENAMINE [Concomitant]
     Active Substance: CHLORPHENIRAMINE MALEATE
     Dosage: OLE: WEEK 264
     Route: 065
     Dates: start: 20190925
  75. PARACETAMOL [Concomitant]
     Active Substance: ACETAMINOPHEN
     Dosage: OLE-WEEK 144
     Route: 065
     Dates: start: 20170607
  76. PARACETAMOL [Concomitant]
     Active Substance: ACETAMINOPHEN
     Dosage: OLE-WEEK 264
     Route: 065
     Dates: start: 20190925
  77. METHYLPREDNISOLONE. [Concomitant]
     Active Substance: METHYLPREDNISOLONE
     Dosage: OLE-WEEK 48
     Route: 065
     Dates: start: 20150805, end: 20150805
  78. COUGH AND COLD PREPARATIONS [Concomitant]
     Active Substance: UNSPECIFIED INGREDIENT
     Indication: NASOPHARYNGITIS
     Dosage: 1 SACHET
     Route: 065
     Dates: start: 20160202, end: 20160202
  79. COCODAMOL [Concomitant]
     Active Substance: ACETAMINOPHEN\CODEINE PHOSPHATE
     Indication: PAIN IN EXTREMITY
     Dosage: 1 TABLET
     Route: 065
     Dates: start: 20140729
  80. CITALOPRAM [Concomitant]
     Active Substance: CITALOPRAM HYDROBROMIDE
     Indication: DEPRESSED MOOD
     Route: 065
     Dates: start: 201208, end: 20130220
  81. ONDANSETRON [Concomitant]
     Active Substance: ONDANSETRON
     Indication: NAUSEA
     Route: 065
     Dates: start: 20200202, end: 20200202

REACTIONS (1)
  - Anal abscess [Recovering/Resolving]

NARRATIVE: CASE EVENT DATE: 20200201
